FAERS Safety Report 18111373 (Version 3)
Quarter: 2021Q3

REPORT INFORMATION
  Report Type: Spontaneous
  Country: US (occurrence: US)
  Receive Date: 20200804
  Receipt Date: 20210927
  Transmission Date: 20211014
  Serious: No
  Sender: FDA-Public Use
  Company Number: US-SA-2020SA197587

PATIENT
  Age: 56 Year
  Sex: Male

DRUGS (3)
  1. KEVZARA [Suspect]
     Active Substance: SARILUMAB
     Dosage: 150 MG, Q3W
     Route: 058
     Dates: start: 202105
  2. KEVZARA [Suspect]
     Active Substance: SARILUMAB
     Indication: RHEUMATOID ARTHRITIS
     Dosage: 200 MG, QOW
     Route: 058
     Dates: start: 20200630
  3. KEVZARA [Suspect]
     Active Substance: SARILUMAB
     Dosage: 200 MG, QOW
     Route: 058
     Dates: start: 20200701

REACTIONS (4)
  - Drug ineffective [Unknown]
  - COVID-19 [Unknown]
  - Inappropriate schedule of product administration [Unknown]
  - White blood cell count decreased [Unknown]

NARRATIVE: CASE EVENT DATE: 202007
